FAERS Safety Report 10330767 (Version 1)
Quarter: 2014Q3

REPORT INFORMATION
  Report Type: Spontaneous
  Country: US (occurrence: None)
  Receive Date: 20140718
  Receipt Date: 20140718
  Transmission Date: 20150326
  Serious: Yes (Hospitalization, Disabling)
  Sender: FDA-Public Use
  Company Number: None

PATIENT
  Age: 52 Year
  Sex: Female

DRUGS (1)
  1. LEVAQUIN [Suspect]
     Active Substance: LEVOFLOXACIN
     Indication: PNEUMONIA
     Dates: start: 20080611, end: 20080616

REACTIONS (12)
  - Neuropathy peripheral [None]
  - Groin pain [None]
  - Peripheral swelling [None]
  - Retinal artery occlusion [None]
  - Paraesthesia [None]
  - Nervous system disorder [None]
  - Toxicity to various agents [None]
  - Gait disturbance [None]
  - Chest pain [None]
  - Back pain [None]
  - Hypoaesthesia [None]
  - Retinal vascular thrombosis [None]

NARRATIVE: CASE EVENT DATE: 20080611
